FAERS Safety Report 4768621-4 (Version None)
Quarter: 2005Q3

REPORT INFORMATION
  Report Type: 
  Country: None (occurrence: None)
  Receive Date: 20050913
  Receipt Date: 20050829
  Transmission Date: 20060218
  Serious: Yes (Hospitalization)
  Sender: FDA-Public Use
  Company Number: 2005BI008321

PATIENT
  Sex: Female

DRUGS (1)
  1. AVONEX [Suspect]
     Indication: MULTIPLE SCLEROSIS
     Dosage: 30 UG; QW; IM
     Route: 030
     Dates: start: 20030601

REACTIONS (9)
  - ABDOMINAL ABSCESS [None]
  - BETA HAEMOLYTIC STREPTOCOCCAL INFECTION [None]
  - CITROBACTER INFECTION [None]
  - INCISION SITE ABSCESS [None]
  - INCISIONAL HERNIA [None]
  - KLEBSIELLA INFECTION [None]
  - PANNICULITIS [None]
  - POST PROCEDURAL COMPLICATION [None]
  - POSTOPERATIVE INFECTION [None]
